FAERS Safety Report 5100014-2 (Version None)
Quarter: 2006Q3

REPORT INFORMATION
  Report Type: 
  Country: None (occurrence: None)
  Receive Date: 20060906
  Receipt Date: 20060906
  Transmission Date: 20061208
  Serious: Yes (Life-Threatening, Hospitalization, Disabling, Other)
  Sender: FDA-Public Use
  Company Number: None

PATIENT
  Age: 38 Year
  Sex: Male
  Weight: 92.9874 kg

DRUGS (1)
  1. LEVAQUIN [Suspect]
     Indication: PROSTATITIS
     Dosage: ONE TABLET DAILY PO
     Route: 048
     Dates: start: 20060807, end: 20060905

REACTIONS (9)
  - ARTHRALGIA [None]
  - BRADYCARDIA [None]
  - CARDIAC DISORDER [None]
  - DIZZINESS [None]
  - HYPERHIDROSIS [None]
  - NAUSEA [None]
  - NEUROPATHY [None]
  - PALPITATIONS [None]
  - VENTRICULAR EXTRASYSTOLES [None]
